FAERS Safety Report 23334342 (Version 5)
Quarter: 2024Q2

REPORT INFORMATION
  Report Type: Spontaneous
  Country: GR (occurrence: GR)
  Receive Date: 20231223
  Receipt Date: 20240405
  Transmission Date: 20240715
  Serious: Yes (Life-Threatening, Other)
  Sender: FDA-Public Use
  Company Number: GR-VIATRIS-2023-04-780

PATIENT
  Age: 52 Year
  Sex: Female

DRUGS (6)
  1. QUETIAPINE [Suspect]
     Active Substance: QUETIAPINE
     Indication: Anxiety
     Dosage: 100 MILLIGRAM, QD
     Route: 065
  2. QUETIAPINE [Suspect]
     Active Substance: QUETIAPINE
     Indication: Confusional state
  3. HALOPERIDOL [Suspect]
     Active Substance: HALOPERIDOL
     Indication: Intellectual disability
     Dosage: 2 MILLIGRAM, TID (15 DROPS)
     Route: 048
  4. LORAZEPAM [Suspect]
     Active Substance: LORAZEPAM
     Indication: Intellectual disability
     Dosage: 1 MILLIGRAM, BID
     Route: 065
  5. CITALOPRAM [Suspect]
     Active Substance: CITALOPRAM\CITALOPRAM HYDROBROMIDE
     Indication: Intellectual disability
     Dosage: 20 MILLIGRAM, QD
     Route: 065
  6. HALOPERIDOL [Concomitant]
     Active Substance: HALOPERIDOL
     Indication: Product used for unknown indication
     Dosage: 2 MILLIGRAM, TID (15 DROPS)
     Route: 048

REACTIONS (8)
  - Neuroleptic malignant syndrome [Unknown]
  - Pyrexia [Recovering/Resolving]
  - Blood creatinine increased [Unknown]
  - Troponin increased [Unknown]
  - Blood lactate dehydrogenase increased [Unknown]
  - Blood creatine phosphokinase increased [Unknown]
  - Tachycardia [Unknown]
  - Hyponatraemia [Unknown]
